FAERS Safety Report 18640018 (Version 2)
Quarter: 2022Q4

REPORT INFORMATION
  Report Type: Spontaneous
  Country: US (occurrence: US)
  Receive Date: 20201220
  Receipt Date: 20221212
  Transmission Date: 20230113
  Serious: No
  Sender: FDA-Public Use
  Company Number: US-PACIRA-202000407

PATIENT
  Age: 50 Year
  Sex: Female

DRUGS (2)
  1. EXPAREL [Suspect]
     Active Substance: BUPIVACAINE
     Indication: Endometriosis ablation
     Dosage: (266 MG) 20 ML ADMIXED WITH 20 ML OF 0.25% ML BUPIVACAINE
     Route: 065
     Dates: start: 20200630, end: 20200630
  2. BUPIVACAINE [Suspect]
     Active Substance: BUPIVACAINE
     Indication: Endometriosis ablation
     Dosage: 20 ML ADMIXED WITH 20 ML OF EXPAREL
     Route: 065
     Dates: start: 20200630, end: 20200630

REACTIONS (13)
  - Ataxia [Unknown]
  - General physical health deterioration [Unknown]
  - Nervous system disorder [Unknown]
  - Condition aggravated [Unknown]
  - Off label use [Unknown]
  - Mobility decreased [Unknown]
  - Proctalgia [Not Recovered/Not Resolved]
  - Pain in extremity [Not Recovered/Not Resolved]
  - Paraesthesia [Unknown]
  - Back pain [Not Recovered/Not Resolved]
  - Hypoaesthesia [Unknown]
  - Paraesthesia [Unknown]
  - Myalgia [Not Recovered/Not Resolved]
